FAERS Safety Report 9397491 (Version 1)
Quarter: 2013Q3

REPORT INFORMATION
  Report Type: Spontaneous
  Country: US (occurrence: None)
  Receive Date: 20130711
  Receipt Date: 20130711
  Transmission Date: 20140515
  Serious: No
  Sender: FDA-Public Use
  Company Number: None

PATIENT
  Age: 80 Year
  Sex: Male

DRUGS (1)
  1. STIVARGA [Suspect]
     Dosage: 160 MG QD PO
     Route: 048
     Dates: start: 20130130, end: 20130710

REACTIONS (1)
  - Skin ulcer [None]
